FAERS Safety Report 8175419-6 (Version None)
Quarter: 2012Q1

REPORT INFORMATION
  Report Type: 
  Country: None (occurrence: None)
  Receive Date: 20120229
  Receipt Date: 20120221
  Transmission Date: 20120608
  Serious: Yes (Hospitalization)
  Sender: FDA-Public Use
  Company Number: US-ASTRAZENECA-2011SE27004

PATIENT
  Age: 77 Year
  Sex: Female

DRUGS (3)
  1. SYMBICORT [Suspect]
     Dosage: 2 PUFFS TWO TIMES A DAY
     Route: 055
  2. SYMBICORT [Suspect]
     Dosage: 1 PUFF TWO TIMES A DAY
     Route: 055
  3. NEXIUM [Concomitant]
     Route: 048

REACTIONS (3)
  - DYSPHONIA [None]
  - PNEUMONIA [None]
  - INCORRECT DOSE ADMINISTERED [None]
